FAERS Safety Report 17053072 (Version 1)
Quarter: 2019Q4

REPORT INFORMATION
  Report Type: Spontaneous
  Country: US (occurrence: US)
  Receive Date: 20191120
  Receipt Date: 20191120
  Transmission Date: 20200122
  Serious: Yes (Hospitalization)
  Sender: FDA-Public Use
  Company Number: US-APOTEX-2019AP024825

PATIENT
  Age: 12 Year
  Sex: Female

DRUGS (30)
  1. LITHIUM CARBONATE. [Suspect]
     Active Substance: LITHIUM CARBONATE
     Indication: POST-TRAUMATIC STRESS DISORDER
  2. PRAZOSIN. [Concomitant]
     Active Substance: PRAZOSIN
     Indication: POST-TRAUMATIC STRESS DISORDER
     Dosage: 1 MG, Q.AM
     Route: 065
  3. ARIPIPRAZOLE. [Suspect]
     Active Substance: ARIPIPRAZOLE
     Indication: POST-TRAUMATIC STRESS DISORDER
     Dosage: 15 MG, UNK
     Route: 065
  4. RISPERIDONE. [Suspect]
     Active Substance: RISPERIDONE
     Indication: POST-TRAUMATIC STRESS DISORDER
     Dosage: 0.5 MG, BID
     Route: 065
  5. LITHIUM CARBONATE. [Suspect]
     Active Substance: LITHIUM CARBONATE
     Indication: DISRUPTIVE MOOD DYSREGULATION DISORDER
     Dosage: UNK
     Route: 065
  6. BUSPIRONE [Suspect]
     Active Substance: BUSPIRONE HYDROCHLORIDE
     Indication: POST-TRAUMATIC STRESS DISORDER
     Dosage: 15 MG, TID
     Route: 065
  7. BUSPIRONE [Suspect]
     Active Substance: BUSPIRONE HYDROCHLORIDE
     Indication: DISRUPTIVE MOOD DYSREGULATION DISORDER
  8. CLONAZEPAM. [Suspect]
     Active Substance: CLONAZEPAM
     Indication: DISRUPTIVE MOOD DYSREGULATION DISORDER
  9. OXCARBAZEPINE. [Suspect]
     Active Substance: OXCARBAZEPINE
     Indication: POST-TRAUMATIC STRESS DISORDER
     Dosage: 1200 MG, BID
     Route: 065
  10. ARIPIPRAZOLE. [Suspect]
     Active Substance: ARIPIPRAZOLE
     Dosage: 5 MG, Q.H.S.
     Route: 065
  11. CARBAMAZEPINE. [Suspect]
     Active Substance: CARBAMAZEPINE
     Indication: POST-TRAUMATIC STRESS DISORDER
     Dosage: UNK
     Route: 065
  12. CARBAMAZEPINE. [Suspect]
     Active Substance: CARBAMAZEPINE
     Indication: DISRUPTIVE MOOD DYSREGULATION DISORDER
  13. SERTRALINE [Suspect]
     Active Substance: SERTRALINE HYDROCHLORIDE
     Indication: DISRUPTIVE MOOD DYSREGULATION DISORDER
  14. MELATONIN [Suspect]
     Active Substance: MELATONIN
     Indication: DISRUPTIVE MOOD DYSREGULATION DISORDER
     Dosage: 3 MG, Q.H.S.
     Route: 065
  15. MELATONIN [Suspect]
     Active Substance: MELATONIN
     Indication: POST-TRAUMATIC STRESS DISORDER
  16. CLONAZEPAM. [Suspect]
     Active Substance: CLONAZEPAM
     Indication: POST-TRAUMATIC STRESS DISORDER
     Dosage: UNK
     Route: 065
  17. CITALOPRAM [Suspect]
     Active Substance: CITALOPRAM HYDROBROMIDE
     Indication: POST-TRAUMATIC STRESS DISORDER
  18. GUANFACINE. [Suspect]
     Active Substance: GUANFACINE
     Indication: POST-TRAUMATIC STRESS DISORDER
     Dosage: UNK
     Route: 065
  19. ARIPIPRAZOLE. [Suspect]
     Active Substance: ARIPIPRAZOLE
     Indication: DISRUPTIVE MOOD DYSREGULATION DISORDER
     Dosage: 2.5 MG, Q.WK.
     Route: 065
  20. RISPERIDONE. [Suspect]
     Active Substance: RISPERIDONE
     Indication: DISRUPTIVE MOOD DYSREGULATION DISORDER
     Dosage: 0.25 MG, Q.H.S.
     Route: 065
  21. GUANFACINE. [Suspect]
     Active Substance: GUANFACINE
     Indication: DISRUPTIVE MOOD DYSREGULATION DISORDER
  22. SERTRALINE [Suspect]
     Active Substance: SERTRALINE HYDROCHLORIDE
     Indication: POST-TRAUMATIC STRESS DISORDER
     Dosage: UNK
     Route: 065
  23. CLONIDINE. [Suspect]
     Active Substance: CLONIDINE
     Indication: DISRUPTIVE MOOD DYSREGULATION DISORDER
     Dosage: UNK
     Route: 065
  24. HYDROXYZINE [Suspect]
     Active Substance: HYDROXYZINE HYDROCHLORIDE
     Indication: DISRUPTIVE MOOD DYSREGULATION DISORDER
  25. PRAZOSIN. [Concomitant]
     Active Substance: PRAZOSIN
     Indication: DISRUPTIVE MOOD DYSREGULATION DISORDER
     Dosage: 2 MG, Q.H.S.
     Route: 065
  26. PRAZOSIN. [Concomitant]
     Active Substance: PRAZOSIN
     Dosage: 2 MG, Q.H.S.
     Route: 065
  27. CITALOPRAM [Suspect]
     Active Substance: CITALOPRAM HYDROBROMIDE
     Indication: DISRUPTIVE MOOD DYSREGULATION DISORDER
     Dosage: UNK
     Route: 065
  28. OXCARBAZEPINE. [Suspect]
     Active Substance: OXCARBAZEPINE
     Indication: DISRUPTIVE MOOD DYSREGULATION DISORDER
  29. CLONIDINE. [Suspect]
     Active Substance: CLONIDINE
     Indication: POST-TRAUMATIC STRESS DISORDER
  30. HYDROXYZINE [Suspect]
     Active Substance: HYDROXYZINE HYDROCHLORIDE
     Indication: POST-TRAUMATIC STRESS DISORDER
     Dosage: UNK
     Route: 065

REACTIONS (5)
  - Therapeutic product effect incomplete [Unknown]
  - Irritability [Unknown]
  - Activation syndrome [Unknown]
  - Condition aggravated [Unknown]
  - Weight increased [Unknown]
